FAERS Safety Report 9010351 (Version 1)
Quarter: 2013Q1

REPORT INFORMATION
  Report Type: Spontaneous
  Country: US (occurrence: US)
  Receive Date: 20130109
  Receipt Date: 20130109
  Transmission Date: 20140127
  Serious: Yes (Hospitalization)
  Sender: FDA-Public Use
  Company Number: US-009507513-1301USA002074

PATIENT
  Sex: Male

DRUGS (9)
  1. SINGULAIR [Suspect]
     Dosage: 10 MG, SINGLE
     Route: 048
  2. ALLOPURINOL [Suspect]
     Indication: PRODUCT USED FOR UNKNOWN INDICATION
     Dosage: 300 MG, SINGLE
     Route: 048
  3. METOCLOPRAMIDE [Suspect]
     Dosage: 30 MG, X2
     Route: 048
  4. ONDANSETRON [Suspect]
     Dosage: 16 MG, X2
     Route: 048
  5. PREDNISOLONE [Suspect]
     Dosage: 100 MG, SINGLE
     Route: 048
  6. FLUDARABINE PHOSPHATE [Suspect]
     Dosage: 49 MG, Q28D
     Route: 042
  7. CYCLOPHOSPHAMIDE [Suspect]
     Dosage: 49 MG, Q28D
     Route: 042
  8. RITUXIMAB [Suspect]
     Dosage: 735 MG, Q28D
     Route: 042
  9. SULFAMETHOPRIM [Concomitant]
     Indication: CHRONIC LYMPHOCYTIC LEUKAEMIA

REACTIONS (1)
  - Febrile neutropenia [Unknown]
